FAERS Safety Report 13911340 (Version 2)
Quarter: 2017Q4

REPORT INFORMATION
  Report Type: Spontaneous
  Country: US (occurrence: US)
  Receive Date: 20170828
  Receipt Date: 20171122
  Transmission Date: 20180320
  Serious: Yes (Life-Threatening, Other)
  Sender: FDA-Public Use
  Company Number: PHHY2017US125456

PATIENT
  Age: 34 Year
  Sex: Female

DRUGS (6)
  1. LITHIUM. [Suspect]
     Active Substance: LITHIUM
     Indication: PSYCHOTIC DISORDER
  2. CLOZAPINE. [Suspect]
     Active Substance: CLOZAPINE
     Indication: BIPOLAR DISORDER
     Route: 065
  3. LITHIUM. [Suspect]
     Active Substance: LITHIUM
     Indication: BIPOLAR DISORDER
     Route: 065
  4. RISPERIDONE. [Suspect]
     Active Substance: RISPERIDONE
     Indication: BIPOLAR DISORDER
     Route: 065
  5. RISPERIDONE. [Suspect]
     Active Substance: RISPERIDONE
     Indication: PSYCHOTIC DISORDER
  6. CLOZAPINE. [Suspect]
     Active Substance: CLOZAPINE
     Indication: PSYCHOTIC DISORDER

REACTIONS (19)
  - Hypophagia [Recovering/Resolving]
  - Disturbance in attention [Unknown]
  - Maternal exposure during pregnancy [Unknown]
  - Paranoia [Recovering/Resolving]
  - Leukocytosis [Unknown]
  - Abnormal behaviour [Recovering/Resolving]
  - Tachycardia [Recovering/Resolving]
  - Acute kidney injury [Unknown]
  - Neuroleptic malignant syndrome [Recovering/Resolving]
  - Agitation [Recovering/Resolving]
  - Thinking abnormal [Recovering/Resolving]
  - Muscle rigidity [Recovering/Resolving]
  - Depression [Unknown]
  - Mutism [Recovering/Resolving]
  - Clonus [Recovering/Resolving]
  - Insomnia [Unknown]
  - Rhabdomyolysis [Unknown]
  - Pyrexia [Recovering/Resolving]
  - Anuria [Unknown]
